FAERS Safety Report 16766328 (Version 1)
Quarter: 2019Q4

REPORT INFORMATION
  Report Type: Spontaneous
  Country: US (occurrence: US)
  Receive Date: 20190830
  Receipt Date: 20190830
  Transmission Date: 20200122
  Serious: Yes (Hospitalization)
  Sender: FDA-Public Use
  Company Number: None

PATIENT
  Age: 41 Year
  Sex: Male

DRUGS (13)
  1. MYCOPHENOLIC [Concomitant]
     Active Substance: MYCOPHENOLIC ACID
  2. PEPCID [Concomitant]
     Active Substance: FAMOTIDINE
  3. NEPHOR-VITE [Concomitant]
  4. AMIODARONE [Concomitant]
     Active Substance: AMIODARONE
  5. MELATONIN [Concomitant]
     Active Substance: MELATONIN
  6. MYFORTIC [Concomitant]
     Active Substance: MYCOPHENOLATE SODIUM
  7. TACROLIMUS. [Suspect]
     Active Substance: TACROLIMUS
     Indication: LIVER TRANSPLANT
     Route: 048
     Dates: start: 20190702
  8. LOW DOSE ASA [Concomitant]
  9. MAG OXIDE [Concomitant]
     Active Substance: MAGNESIUM OXIDE
  10. COLACE [Concomitant]
     Active Substance: DOCUSATE SODIUM
  11. FERROUS SULF [Concomitant]
     Active Substance: FERROUS SULFATE
  12. TRAMADOL. [Concomitant]
     Active Substance: TRAMADOL
  13. SENNA [Concomitant]
     Active Substance: SENNA LEAF\SENNOSIDES\SENNOSIDES A AND B

REACTIONS (5)
  - Pain in extremity [None]
  - Hypotension [None]
  - Dizziness [None]
  - Abdominal pain upper [None]
  - Gastrointestinal disorder [None]

NARRATIVE: CASE EVENT DATE: 20190708
